FAERS Safety Report 24786753 (Version 1)
Quarter: 2024Q4

REPORT INFORMATION
  Report Type: Spontaneous
  Country: US (occurrence: US)
  Receive Date: 20241230
  Receipt Date: 20241230
  Transmission Date: 20250114
  Serious: No
  Sender: CELLTRION
  Company Number: US-CELLTRION INC.-2024US021229

PATIENT

DRUGS (5)
  1. RITUXIMAB [Suspect]
     Active Substance: RITUXIMAB
     Indication: Cryoglobulinaemia
     Dosage: 375 MG/M2/WEEK FOR FOUR CYCLES
  2. PREDNISONE [Concomitant]
     Active Substance: PREDNISONE
     Indication: Cryoglobulinaemia
     Dosage: 100 MG/DAY (HIGH DOSE)
     Route: 048
  3. PREDNISONE [Concomitant]
     Active Substance: PREDNISONE
     Dosage: PROLONGED TAPER ON LOW DOSE AT 30 MG/DAY
     Route: 048
  4. IMMUNE GLOBULIN NOS [Concomitant]
     Active Substance: IMMUNE GLOBULIN NOS
     Indication: Cryoglobulinaemia
     Dosage: 1G/KG/DAY
     Route: 042
  5. CYCLOPHOSPHAMIDE [Concomitant]
     Active Substance: CYCLOPHOSPHAMIDE
     Indication: Cryoglobulinaemia
     Dosage: 750 MG/M2/MONTH

REACTIONS (1)
  - Drug ineffective for unapproved indication [Unknown]
